FAERS Safety Report 23931592 (Version 1)
Quarter: 2024Q2

REPORT INFORMATION
  Report Type: Report from Study
  Country: CA (occurrence: CA)
  Receive Date: 20240603
  Receipt Date: 20240603
  Transmission Date: 20240715
  Serious: Yes (Other)
  Sender: FDA-Public Use
  Company Number: CA-ABBVIE-5779026

PATIENT
  Sex: Male

DRUGS (1)
  1. SKYRIZI [Suspect]
     Active Substance: RISANKIZUMAB-RZAA
     Indication: Crohn^s disease
     Route: 058
     Dates: start: 20230602

REACTIONS (10)
  - Abdominal hernia [Unknown]
  - Headache [Unknown]
  - Infection [Unknown]
  - Groin pain [Not Recovered/Not Resolved]
  - Fatigue [Unknown]
  - Crohn^s disease [Unknown]
  - Melaena [Unknown]
  - Pain [Unknown]
  - Testicular oedema [Unknown]
  - Skin laceration [Unknown]

NARRATIVE: CASE EVENT DATE: 20240510
